FAERS Safety Report 20781217 (Version 1)
Quarter: 2022Q2

REPORT INFORMATION
  Report Type: Spontaneous
  Country: US (occurrence: US)
  Receive Date: 20220504
  Receipt Date: 20220504
  Transmission Date: 20220720
  Serious: Yes (Hospitalization)
  Sender: FDA-Public Use
  Company Number: US-BRISTOL-MYERS SQUIBB COMPANY-2022-025200

PATIENT
  Age: 68 Year
  Sex: Female

DRUGS (2)
  1. THALOMID [Suspect]
     Active Substance: THALIDOMIDE
     Indication: Cachexia
     Route: 048
     Dates: start: 202203
  2. THALOMID [Suspect]
     Active Substance: THALIDOMIDE
     Route: 048

REACTIONS (2)
  - Hospitalisation [Unknown]
  - Intentional product use issue [Unknown]
